FAERS Safety Report 25093327 (Version 1)
Quarter: 2025Q1

REPORT INFORMATION
  Report Type: Spontaneous
  Country: US (occurrence: None)
  Receive Date: 20250319
  Receipt Date: 20250319
  Transmission Date: 20250408
  Serious: No
  Sender: ENCUBE ETHICALS
  Company Number: US-Encube-001689

PATIENT
  Age: 14 Year
  Sex: Female

DRUGS (1)
  1. CLINDAMYCIN AND BENZOYL PEROXIDE [Suspect]
     Active Substance: BENZOYL PEROXIDE\CLINDAMYCIN PHOSPHATE
     Indication: Product used for unknown indication
     Dosage: 1.2%/5%, ON FACE

REACTIONS (3)
  - Eye swelling [Unknown]
  - Pruritus [Unknown]
  - Erythema [Unknown]
